FAERS Safety Report 5772880-9 (Version None)
Quarter: 2008Q2

REPORT INFORMATION
  Report Type: 
  Country: None (occurrence: None)
  Receive Date: 20080611
  Receipt Date: 20080603
  Transmission Date: 20081010
  Serious: Yes (Other)
  Sender: FDA-Public Use
  Company Number: 163-20785-08011646

PATIENT
  Age: 45 Year
  Sex: Female

DRUGS (1)
  1. THALOMID [Suspect]
     Indication: MULTIPLE MYELOMA
     Dosage: 100 MG, DAILY, ORAL
     Route: 048
     Dates: start: 20071205, end: 20080101

REACTIONS (3)
  - BLOOD HUMAN CHORIONIC GONADOTROPIN INCREASED [None]
  - BLOOD HUMAN CHORIONIC GONADOTROPIN POSITIVE [None]
  - DRUG INTOLERANCE [None]
